FAERS Safety Report 21468506 (Version 3)
Quarter: 2022Q4

REPORT INFORMATION
  Report Type: Spontaneous
  Country: AT (occurrence: AT)
  Receive Date: 20221017
  Receipt Date: 20221026
  Transmission Date: 20230113
  Serious: Yes (Other)
  Sender: FDA-Public Use
  Company Number: AT-GILEAD-2022-0601600

PATIENT
  Age: 50 Year
  Sex: Female
  Weight: 76 kg

DRUGS (2)
  1. TRODELVY [Suspect]
     Active Substance: SACITUZUMAB GOVITECAN-HZIY
     Indication: Triple negative breast cancer
     Dosage: UNK, C1-9
     Route: 065
     Dates: start: 202112, end: 202208
  2. SIMVASTATIN [Concomitant]
     Active Substance: SIMVASTATIN
     Indication: Triple negative breast cancer

REACTIONS (1)
  - Malignant neoplasm progression [Not Recovered/Not Resolved]

NARRATIVE: CASE EVENT DATE: 20220901
